FAERS Safety Report 15073648 (Version 1)
Quarter: 2018Q2

REPORT INFORMATION
  Report Type: Spontaneous
  Country: DE (occurrence: DE)
  Receive Date: 20180627
  Receipt Date: 20180627
  Transmission Date: 20180711
  Serious: Yes (Other)
  Sender: FDA-Public Use
  Company Number: DE-TEVA-2018-DE-911912

PATIENT
  Age: 27 Year
  Sex: Male
  Weight: 68 kg

DRUGS (1)
  1. CIPROFLOXACIN. [Suspect]
     Active Substance: CIPROFLOXACIN
     Indication: ORCHITIS NONINFECTIVE
     Dosage: 1-0-1 FOR 10 DAYS, AFTER 2 TABLETS ABORT
     Route: 048

REACTIONS (25)
  - Arthralgia [Unknown]
  - Back pain [Unknown]
  - Pain in extremity [Unknown]
  - Tendonitis [Unknown]
  - Speech disorder [Unknown]
  - Weight decreased [Unknown]
  - Mental impairment [Not Recovered/Not Resolved]
  - Fatigue [Unknown]
  - Hypersomnia [Unknown]
  - Arthralgia [Not Recovered/Not Resolved]
  - Headache [Not Recovered/Not Resolved]
  - Gait disturbance [Unknown]
  - Impaired work ability [Unknown]
  - Myalgia [Not Recovered/Not Resolved]
  - Muscular weakness [Unknown]
  - Circulatory collapse [Recovered/Resolved]
  - Tendon pain [Not Recovered/Not Resolved]
  - Asthenia [Unknown]
  - Tremor [Not Recovered/Not Resolved]
  - Tendon pain [Unknown]
  - Decreased appetite [Recovered/Resolved]
  - Feeling abnormal [Unknown]
  - Memory impairment [Not Recovered/Not Resolved]
  - Palpitations [Unknown]
  - Dizziness [Unknown]
